FAERS Safety Report 7271795-7 (Version None)
Quarter: 2011Q1

REPORT INFORMATION
  Report Type: 
  Country: None (occurrence: None)
  Receive Date: 20110131
  Receipt Date: 20110131
  Transmission Date: 20110831
  Serious: Yes (Other)
  Sender: FDA-Public Use
  Company Number: None

PATIENT
  Age: 15 Year
  Sex: Male
  Weight: 84.8226 kg

DRUGS (1)
  1. OLANZAPINE [Suspect]
     Indication: PSYCHOTIC DISORDER
     Dosage: 10 MG QHS PO
     Route: 048
     Dates: start: 20101108, end: 20110112

REACTIONS (3)
  - GALACTORRHOEA [None]
  - BLOOD PROLACTIN INCREASED [None]
  - SCRATCH [None]
